FAERS Safety Report 10751716 (Version 1)
Quarter: 2015Q1

REPORT INFORMATION
  Report Type: Spontaneous
  Country: FR (occurrence: FR)
  Receive Date: 20150130
  Receipt Date: 20150130
  Transmission Date: 20150721
  Serious: Yes (Hospitalization, Other)
  Sender: FDA-Public Use
  Company Number: FR-PFIZER INC-2015036747

PATIENT
  Age: 62 Year
  Sex: Male
  Weight: 96 kg

DRUGS (6)
  1. EUPANTOL [Suspect]
     Active Substance: PANTOPRAZOLE SODIUM
     Dosage: 80 MG, DAILY
     Route: 042
     Dates: start: 20141201, end: 20141210
  2. FORTUM [Concomitant]
     Active Substance: CEFTAZIDIME
     Dosage: UNK
     Dates: start: 20141205
  3. HYDROCORTISONE HEMISUCCINATE [Concomitant]
     Active Substance: HYDROCORTISONE HEMISUCCINATE
     Dosage: UNK
  4. BACTRIM [Concomitant]
     Active Substance: SULFAMETHOXAZOLE\TRIMETHOPRIM
     Dosage: UNK
  5. PROGRAF [Concomitant]
     Active Substance: TACROLIMUS\TACROLIMUS ANHYDROUS
     Dosage: UNK
  6. ARANESP [Concomitant]
     Active Substance: DARBEPOETIN ALFA
     Dosage: UNK

REACTIONS (2)
  - Rhabdomyolysis [Recovered/Resolved]
  - Leukocytosis [Unknown]

NARRATIVE: CASE EVENT DATE: 20141208
